FAERS Safety Report 9009161 (Version 2)
Quarter: 2013Q1

REPORT INFORMATION
  Report Type: Report from Study
  Country: US (occurrence: US)
  Receive Date: 20130111
  Receipt Date: 20130306
  Transmission Date: 20140127
  Serious: Yes (Hospitalization, Other)
  Sender: FDA-Public Use
  Company Number: US-ABBOTT-12P-163-1026555-00

PATIENT
  Age: 58 Year
  Sex: Female

DRUGS (14)
  1. HUMIRA [Suspect]
     Indication: CROHN^S DISEASE
     Dates: start: 20121029, end: 20121224
  2. HUMIRA [Suspect]
     Dates: start: 20130228
  3. APRISO [Concomitant]
     Indication: CROHN^S DISEASE
  4. MVI [Concomitant]
     Indication: VITAMIN SUPPLEMENTATION
  5. DIGESTIVE ENZYMES [Concomitant]
     Indication: MEDICAL DIET
  6. PROBIOTICS [Concomitant]
     Indication: MEDICAL DIET
  7. FOLIC ACID [Concomitant]
     Indication: VITAMIN SUPPLEMENTATION
  8. VITAMIN B [Concomitant]
     Indication: VITAMIN SUPPLEMENTATION
  9. CALCIUM PLUS D3 [Concomitant]
     Indication: MINERAL SUPPLEMENTATION
  10. CAPRYLIC ACID [Concomitant]
     Indication: PRODUCT USED FOR UNKNOWN INDICATION
  11. MAGNESIUM [Concomitant]
     Indication: MINERAL SUPPLEMENTATION
  12. FISH OIL [Concomitant]
     Indication: MEDICAL DIET
  13. COUMADIN [Concomitant]
     Indication: PRODUCT USED FOR UNKNOWN INDICATION
     Dosage: DAILY, CHANGES FROM 6.5 MG TO 7 MG, THEN BACK AGAIN
  14. TRAMADOL [Concomitant]
     Indication: ABDOMINAL PAIN

REACTIONS (4)
  - Small intestinal obstruction [Not Recovered/Not Resolved]
  - Intestinal stenosis [Recovering/Resolving]
  - Abdominal pain [Not Recovered/Not Resolved]
  - Crohn^s disease [Not Recovered/Not Resolved]
